FAERS Safety Report 4524989-5 (Version None)
Quarter: 2004Q4

REPORT INFORMATION
  Report Type: 
  Country: None (occurrence: None)
  Receive Date: 20041117
  Receipt Date: 20030707
  Transmission Date: 20050328
  Serious: Yes (Other)
  Sender: FDA-Public Use
  Company Number: C2003-1682.01

PATIENT
  Age: 26 Year
  Sex: Male

DRUGS (4)
  1. CLOZAPINE [Suspect]
     Indication: SCHIZOAFFECTIVE DISORDER
     Dosage: 300MG Q HS, ORAL
     Route: 048
  2. CLOZAPINE [Suspect]
     Indication: SUICIDAL IDEATION
     Dosage: 300MG Q HS, ORAL
     Route: 048
  3. LAMOTRIGINE [Concomitant]
  4. SERTRALINE HCL [Concomitant]

REACTIONS (1)
  - MASTOCYTOSIS [None]
